FAERS Safety Report 6172816-5 (Version None)
Quarter: 2009Q2

REPORT INFORMATION
  Report Type: 
  Country: None (occurrence: None)
  Receive Date: 20090430
  Receipt Date: 20090424
  Transmission Date: 20091009
  Serious: Yes (Hospitalization)
  Sender: FDA-Public Use
  Company Number: SE-ASTRAZENECA-2009SE01598

PATIENT
  Sex: Male

DRUGS (2)
  1. NEXIUM [Suspect]
     Route: 048
     Dates: start: 20090227, end: 20090310
  2. DUROFERON [Concomitant]
     Route: 048

REACTIONS (3)
  - HYPOTENSION [None]
  - PYREXIA [None]
  - RASH [None]
